FAERS Safety Report 8174576 (Version 2)
Quarter: 2014Q4

REPORT INFORMATION
  Report Type: Report from Study
  Country: FR (occurrence: FR)
  Receive Date: 20111010
  Receipt Date: 20141017
  Transmission Date: 20150529
  Serious: Yes (Hospitalization)
  Sender: FDA-Public Use
  Company Number: FR-PFIZER INC-2011234693

PATIENT
  Age: 53 Year
  Sex: Male

DRUGS (13)
  1. CERUBIDINE [Suspect]
     Active Substance: DAUNORUBICIN HYDROCHLORIDE
     Indication: ACUTE LEUKAEMIA
     Dosage: 60 MG/M2, 1X/DAY
     Route: 042
     Dates: start: 20100604, end: 20100606
  2. PREDNISOLONE. [Suspect]
     Active Substance: PREDNISOLONE
     Dosage: UNK
     Route: 037
     Dates: start: 201006
  3. LERCAN [Concomitant]
     Active Substance: LERCANIDIPINE
     Indication: HYPERTENSION
  4. METHOTREXATE SODIUM. [Suspect]
     Active Substance: METHOTREXATE SODIUM
     Dosage: UNK
     Route: 037
     Dates: start: 201006
  5. ARACYTINE [Suspect]
     Active Substance: CYTARABINE
     Indication: LEUKAEMIA
     Dosage: 1000 MG/KG, 2X/DAY
     Route: 042
     Dates: start: 20100817, end: 20100822
  6. MICARDIS [Concomitant]
     Active Substance: TELMISARTAN
     Indication: HYPERTENSION
  7. ARACYTINE [Suspect]
     Active Substance: CYTARABINE
     Dosage: 50 MG/M2, 1X/DAY
     Route: 042
     Dates: start: 20100720, end: 20100726
  8. ARACYTINE [Suspect]
     Active Substance: CYTARABINE
     Dosage: 200 MG/M2, 1X/DAY
     Route: 042
     Dates: start: 20100604, end: 20100610
  9. CERUBIDINE [Suspect]
     Active Substance: DAUNORUBICIN HYDROCHLORIDE
     Dosage: UNK
     Route: 042
     Dates: start: 20100720, end: 20100721
  10. MITOXANTRONE [Suspect]
     Active Substance: MITOXANTRONE HYDROCHLORIDE
     Dosage: 12 MG/M2, 1X/DAY
     Route: 042
     Dates: start: 20100817, end: 20100818
  11. MYLOTARG [Suspect]
     Active Substance: GEMTUZUMAB OZOGAMICIN
     Indication: ACUTE LEUKAEMIA
     Dosage: 6 MG/M2, 1X/DAY
     Route: 042
     Dates: start: 20100607, end: 20100607
  12. MYLOTARG [Suspect]
     Active Substance: GEMTUZUMAB OZOGAMICIN
     Dosage: 6 MG/M2 ONCE A DAY
     Route: 042
     Dates: start: 20100820, end: 20100820
  13. ARACYTINE [Suspect]
     Active Substance: CYTARABINE
     Dosage: 100 MG, UNKNOWN FREQUENCY
     Route: 037
     Dates: start: 201006

REACTIONS (5)
  - Paraesthesia oral [Recovered/Resolved]
  - VIIth nerve paralysis [Recovered/Resolved]
  - Lyme disease [Recovered/Resolved]
  - Cranial nerve disorder [Recovered/Resolved]
  - Peripheral sensory neuropathy [Recovered/Resolved]

NARRATIVE: CASE EVENT DATE: 20100913
